FAERS Safety Report 18798268 (Version 1)
Quarter: 2021Q1

REPORT INFORMATION
  Report Type: Spontaneous
  Country: US (occurrence: US)
  Receive Date: 20210128
  Receipt Date: 20210128
  Transmission Date: 20210419
  Serious: Yes (Other)
  Sender: FDA-Public Use
  Company Number: US-ASTELLAS-2021US002690

PATIENT
  Age: 44 Year
  Sex: Female

DRUGS (4)
  1. XOSPATA [Suspect]
     Active Substance: GILTERITINIB
     Route: 065
  2. XOSPATA [Suspect]
     Active Substance: GILTERITINIB
     Indication: PRODUCT USED FOR UNKNOWN INDICATION
     Route: 065
     Dates: start: 202002
  3. CRESEMBA [Suspect]
     Active Substance: ISAVUCONAZONIUM SULFATE
     Indication: PRODUCT USED FOR UNKNOWN INDICATION
     Route: 065
     Dates: start: 20201219, end: 20210104
  4. XOSPATA [Suspect]
     Active Substance: GILTERITINIB
     Route: 065
     Dates: start: 20201219, end: 20210104

REACTIONS (2)
  - Acute febrile neutrophilic dermatosis [Unknown]
  - Underdose [Unknown]

NARRATIVE: CASE EVENT DATE: 202002
